FAERS Safety Report 8850258 (Version 1)
Quarter: 2012Q4

REPORT INFORMATION
  Report Type: Report from Study
  Country: DE (occurrence: DE)
  Receive Date: 20121019
  Receipt Date: 20121019
  Transmission Date: 20130627
  Serious: Yes (Hospitalization)
  Sender: FDA-Public Use
  Company Number: DE-ROCHE-1146772

PATIENT
  Age: 61 Year
  Sex: Female
  Weight: 61 kg

DRUGS (3)
  1. PEG-INTERFERON ALFA 2A [Suspect]
     Indication: HEPATITIS C
     Dosage: Date of last dose prior to SAE: 04/Oct/2012
     Route: 058
     Dates: start: 20120411
  2. RIBAVIRIN [Suspect]
     Indication: HEPATITIS C
     Dosage: Date of last dose prior to SAE: 08/Oct/2012
     Route: 048
     Dates: start: 20120411
  3. TELAPREVIR [Suspect]
     Indication: HEPATITIS C
     Dosage: Date of last dose prior to SAE: 03/Oct/2012
     Route: 048

REACTIONS (2)
  - Subdural haematoma [Not Recovered/Not Resolved]
  - Neoplasm [Not Recovered/Not Resolved]
